FAERS Safety Report 7302069-3 (Version None)
Quarter: 2011Q1

REPORT INFORMATION
  Report Type: 
  Country: None (occurrence: None)
  Receive Date: 20110218
  Receipt Date: 20110208
  Transmission Date: 20110831
  Serious: Yes (Hospitalization, Disabling, Other)
  Sender: FDA-Public Use
  Company Number: BE-SANOFI-AVENTIS-2010SA077653

PATIENT
  Age: 78 Year
  Sex: Male

DRUGS (4)
  1. TANAKAN [Concomitant]
  2. BEFACT FORTE [Concomitant]
  3. PLAVIX [Suspect]
     Indication: VERTIGO
     Route: 048
     Dates: start: 20100101, end: 20100801
  4. OMIC [Concomitant]

REACTIONS (10)
  - INTRACRANIAL PRESSURE INCREASED [None]
  - HEADACHE [None]
  - BLOOD PRESSURE INCREASED [None]
  - OFF LABEL USE [None]
  - SOMNOLENCE [None]
  - VOMITING PROJECTILE [None]
  - CEREBRAL HAEMORRHAGE [None]
  - LACUNAR INFARCTION [None]
  - DEPRESSED LEVEL OF CONSCIOUSNESS [None]
  - GAIT DISTURBANCE [None]
